FAERS Safety Report 8370383-9 (Version None)
Quarter: 2012Q2

REPORT INFORMATION
  Report Type: 
  Country: None (occurrence: None)
  Receive Date: 20120518
  Receipt Date: 20120507
  Transmission Date: 20120825
  Serious: Yes (Other)
  Sender: FDA-Public Use
  Company Number: US-JNJFOC-20120401300

PATIENT
  Sex: Female
  Weight: 60.69 kg

DRUGS (4)
  1. INFLIXIMAB, RECOMBINANT [Suspect]
     Indication: INFLAMMATORY BOWEL DISEASE
     Route: 042
     Dates: start: 20070506
  2. BIRTH CONTROL PILLS [Concomitant]
  3. MOMETASONE FUROATE [Concomitant]
  4. VITAMIN D [Concomitant]

REACTIONS (1)
  - PAPILLOMA VIRAL INFECTION [None]
